FAERS Safety Report 9108842 (Version 2)
Quarter: 2013Q2

REPORT INFORMATION
  Report Type: Spontaneous
  Country: US (occurrence: US)
  Receive Date: 20130222
  Receipt Date: 20130617
  Transmission Date: 20140414
  Serious: Yes (Hospitalization)
  Sender: FDA-Public Use
  Company Number: US-BAYER-2013-020379

PATIENT
  Age: 48 Year
  Sex: Female
  Weight: 113.38 kg

DRUGS (21)
  1. YAZ [Suspect]
  2. BEYAZ [Suspect]
  3. VANCOMYCIN [Concomitant]
  4. CLINDAMYCIN [Concomitant]
  5. DILAUDID [Concomitant]
  6. ZOFRAN [Concomitant]
  7. PROTONIX [Concomitant]
  8. TYLENOL [Concomitant]
  9. RESTORIL [Concomitant]
  10. DULCOLAX [BISACODYL] [Concomitant]
  11. ALIMENTARY TRACT AND METABOLISM [Concomitant]
  12. CALCITROL [Concomitant]
  13. PHOSLO [Concomitant]
  14. TRIAMTERENE AND HYDROCHLOROTHIAZIDE [Concomitant]
     Indication: HYPERTENSION
     Route: 048
  15. ATENOLOL [Concomitant]
     Indication: HYPERTENSION
     Route: 048
  16. ALPRAZOLAM [Concomitant]
     Route: 048
  17. LEVOTHYROXINE [Concomitant]
     Indication: POST PROCEDURAL HYPOTHYROIDISM
     Route: 048
  18. MAGNESIUM [Concomitant]
     Route: 048
  19. ALIMENTARY TRACT AND METABOLISM [Concomitant]
     Indication: MINERAL SUPPLEMENTATION
  20. TANDA [Concomitant]
     Indication: MINERAL SUPPLEMENTATION
     Route: 048
  21. CALTRATE WITH VITAMIN D [Concomitant]
     Indication: MINERAL SUPPLEMENTATION
     Route: 048

REACTIONS (2)
  - Thrombophlebitis superficial [None]
  - Vena cava thrombosis [None]
